FAERS Safety Report 6550418-6 (Version None)
Quarter: 2010Q1

REPORT INFORMATION
  Report Type: 
  Country: None (occurrence: None)
  Receive Date: 20100121
  Receipt Date: 20100109
  Transmission Date: 20100710
  Serious: Yes (Hospitalization)
  Sender: FDA-Public Use
  Company Number: 2010AP000070

PATIENT
  Age: 74 Year
  Sex: Male

DRUGS (1)
  1. SELEGILINE HCL [Suspect]
     Indication: PARKINSONISM
     Dosage: 5 MG;BID;PO
     Route: 048
     Dates: end: 20091210

REACTIONS (4)
  - APPARENT DEATH [None]
  - HALLUCINATION [None]
  - HEADACHE [None]
  - PNEUMONIA ASPIRATION [None]
